FAERS Safety Report 25890726 (Version 1)
Quarter: 2025Q4

REPORT INFORMATION
  Report Type: Spontaneous
  Country: US (occurrence: None)
  Receive Date: 20251006
  Receipt Date: 20251006
  Transmission Date: 20260118
  Serious: Yes (Hospitalization)
  Sender: FDA-CTU
  Company Number: None

PATIENT
  Age: 29 Year
  Sex: Female
  Weight: 62.55 kg

DRUGS (4)
  1. DROPERIDOL [Suspect]
     Active Substance: DROPERIDOL
     Indication: Vomiting
     Dosage: OTHER QUANTITY : 1 INJECTION(S);?OTHER FREQUENCY : ONCE;?OTHER ROUTE : IV ARM INJECTION;?
     Route: 050
  2. AMITRIPTYLINE [Suspect]
     Active Substance: AMITRIPTYLINE
  3. AMITRIPTYLINE [Concomitant]
     Active Substance: AMITRIPTYLINE
  4. Zoloft - 50mg [Concomitant]

REACTIONS (8)
  - Seizure [None]
  - Tremor [None]
  - Neck pain [None]
  - Restlessness [None]
  - Sinus tachycardia [None]
  - Chest pain [None]
  - Hyperhidrosis [None]
  - Drug interaction [None]

NARRATIVE: CASE EVENT DATE: 20250830
